FAERS Safety Report 20676664 (Version 1)
Quarter: 2022Q2

REPORT INFORMATION
  Report Type: Spontaneous
  Country: CA (occurrence: CA)
  Receive Date: 20220406
  Receipt Date: 20220406
  Transmission Date: 20220721
  Serious: Yes (Life-Threatening)
  Sender: FDA-Public Use
  Company Number: CA-TEVA-2022-CA-2023315

PATIENT
  Age: 70 Year
  Sex: Female
  Weight: 73 kg

DRUGS (30)
  1. CLOPIDOGREL [Suspect]
     Active Substance: CLOPIDOGREL BISULFATE
     Indication: Thrombosis prophylaxis
     Dosage: 75 MILLIGRAM DAILY;
     Route: 048
  2. ACETAMINOPHEN [Concomitant]
     Active Substance: ACETAMINOPHEN
  3. ALENDRONATE [Concomitant]
     Active Substance: ALENDRONATE SODIUM
  4. AMIODARONE [Concomitant]
     Active Substance: AMIODARONE
  5. CALCIUM CARBONATE [Concomitant]
     Active Substance: CALCIUM CARBONATE
  6. CEFAZOLIN [Concomitant]
     Active Substance: CEFAZOLIN
  7. CHOLECALCIFEROL [Concomitant]
     Active Substance: CHOLECALCIFEROL
  8. CYANOCOBALAMIN [Concomitant]
     Active Substance: CYANOCOBALAMIN
  9. DIMENHYDRINATE [Concomitant]
     Active Substance: DIMENHYDRINATE
  10. ASPIRIN [Concomitant]
     Active Substance: ASPIRIN
  11. EZETIMIBE [Concomitant]
     Active Substance: EZETIMIBE
  12. FENTANYL [Concomitant]
     Active Substance: FENTANYL
  13. FUROSEMIDE [Concomitant]
     Active Substance: FUROSEMIDE
     Route: 065
  14. LORAZEPAM [Concomitant]
     Active Substance: LORAZEPAM
     Route: 065
  15. LORAZEPAM [Concomitant]
     Active Substance: LORAZEPAM
     Route: 065
  16. METOPROLOL [Concomitant]
     Active Substance: METOPROLOL
     Route: 065
  17. MORPHINE [Concomitant]
     Active Substance: MORPHINE
  18. MYRBETRIQ [Concomitant]
     Active Substance: MIRABEGRON
  19. NITROGLYCERIN [Concomitant]
     Active Substance: NITROGLYCERIN
  20. OXAZEPAM [Concomitant]
     Active Substance: OXAZEPAM
  21. PANTOPRAZOLE [Concomitant]
     Active Substance: PANTOPRAZOLE
  22. PREDNISONE [Concomitant]
     Active Substance: PREDNISONE
  23. RAMIPRIL [Concomitant]
     Active Substance: RAMIPRIL
  24. ROSUVASTATIN [Concomitant]
     Active Substance: ROSUVASTATIN
     Route: 058
  25. ALBUTEROL [Concomitant]
     Active Substance: ALBUTEROL
  26. SOLIFENACIN [Concomitant]
     Active Substance: SOLIFENACIN
  27. SPIRONOLACTONE [Concomitant]
     Active Substance: SPIRONOLACTONE
  28. NALOXONE HYDROCHLORIDE\OXYCODONE HYDROCHLORIDE [Concomitant]
     Active Substance: NALOXONE HYDROCHLORIDE\OXYCODONE HYDROCHLORIDE
  29. VANCOMYCIN [Concomitant]
     Active Substance: VANCOMYCIN
  30. ZOPICLONE [Concomitant]
     Active Substance: ZOPICLONE

REACTIONS (1)
  - Venous haemorrhage [Recovered/Resolved]
